FAERS Safety Report 4323437-8 (Version None)
Quarter: 2004Q1

REPORT INFORMATION
  Report Type: 
  Country: None (occurrence: None)
  Receive Date: 20040325
  Receipt Date: 20040303
  Transmission Date: 20041129
  Serious: Yes (Life-Threatening, Hospitalization)
  Sender: FDA-Public Use
  Company Number: WAES 0403USA00287

PATIENT
  Age: 58 Year
  Sex: Male

DRUGS (4)
  1. AMIKIN [Concomitant]
  2. PRIMAXIN [Suspect]
     Indication: KLEBSIELLA INFECTION
     Route: 042
     Dates: start: 20040302, end: 20040302
  3. PRIMAXIN [Suspect]
     Indication: PNEUMONIA
     Route: 042
     Dates: start: 20040302, end: 20040302
  4. VANCOMYCIN [Concomitant]

REACTIONS (7)
  - ANXIETY [None]
  - DYSPNOEA [None]
  - ERYTHEMA [None]
  - FLUSHING [None]
  - PSYCHOMOTOR HYPERACTIVITY [None]
  - RESPIRATORY RATE INCREASED [None]
  - TREMOR [None]
